FAERS Safety Report 8824255 (Version 1)
Quarter: 2012Q4

REPORT INFORMATION
  Report Type: 
  Country: ES (occurrence: ES)
  Receive Date: 20121004
  Receipt Date: 20121004
  Transmission Date: 20130627
  Serious: Yes (Hospitalization, Other)
  Sender: FDA-Public Use
  Company Number: ES-009507513-1209ESP010738

PATIENT
  Age: 57 Year
  Sex: Male
  Weight: 75 kg

DRUGS (8)
  1. VICTRELIS [Suspect]
     Indication: HEPATITIS C
     Dosage: 800 mg, q8h
     Route: 058
     Dates: start: 20120530, end: 20120731
  2. VICTRELIS [Suspect]
     Indication: HEPATIC CIRRHOSIS
  3. PEGASYS [Suspect]
     Indication: HEPATITIS C
     Dosage: UNK, qw
     Route: 058
     Dates: start: 2006, end: 2006
  4. PEGASYS [Suspect]
     Indication: HEPATIC CIRRHOSIS
     Dosage: 180 Microgram, UNK
     Route: 058
     Dates: start: 20120511, end: 20120731
  5. REBETOL [Suspect]
     Indication: HEPATITIS C
     Dosage: UNK, qd
     Route: 048
     Dates: start: 2006, end: 2006
  6. REBETOL [Suspect]
     Indication: HEPATIC CIRRHOSIS
     Dosage: 1000 mg, qd
     Route: 048
     Dates: start: 20120511, end: 20120530
  7. REBETOL [Suspect]
     Dosage: 800 mg, qd
     Route: 048
     Dates: start: 20120531, end: 20120711
  8. REBETOL [Suspect]
     Dosage: 600 mg, qd
     Route: 048
     Dates: start: 20120711, end: 20120731

REACTIONS (6)
  - Renal failure [Recovered/Resolved]
  - Salmonellosis [Recovered/Resolved]
  - Sepsis [Recovered/Resolved]
  - Anaemia [Unknown]
  - No therapeutic response [Unknown]
  - Neutrophil count decreased [Unknown]
